FAERS Safety Report 21015931 (Version 1)
Quarter: 2022Q2

REPORT INFORMATION
  Report Type: Spontaneous
  Country: US (occurrence: None)
  Receive Date: 20220627
  Receipt Date: 20220627
  Transmission Date: 20220720
  Serious: Yes (Hospitalization)
  Sender: FDA-Public Use
  Company Number: None

PATIENT
  Age: 72 Year
  Sex: Male
  Weight: 98.88 kg

DRUGS (2)
  1. CLOPIDOGREL BISULFATE [Suspect]
     Active Substance: CLOPIDOGREL BISULFATE
     Indication: Peripheral endarterectomy
     Dosage: FREQUENCY : DAILY;?
     Route: 048
     Dates: start: 20220301, end: 20220606
  2. ASPIRIN 81MG [Suspect]
     Active Substance: ASPIRIN
     Indication: Peripheral endarterectomy
     Dosage: FREQUENCY : DAILY;?
     Route: 048
     Dates: start: 20220426

REACTIONS (1)
  - Rectal haemorrhage [None]

NARRATIVE: CASE EVENT DATE: 20220606
